FAERS Safety Report 11055515 (Version 7)
Quarter: 2020Q4

REPORT INFORMATION
  Report Type: Spontaneous
  Country: US (occurrence: US)
  Receive Date: 20150422
  Receipt Date: 20201211
  Transmission Date: 20210113
  Serious: No
  Sender: FDA-Public Use
  Company Number: US-PFIZER INC-2015137455

PATIENT
  Age: 52 Year
  Sex: Female
  Weight: 107 kg

DRUGS (46)
  1. LYRICA [Suspect]
     Active Substance: PREGABALIN
     Indication: NEUROPATHY PERIPHERAL
     Dosage: 100 MG (100 MG, QID- 5X/DAY (TAKE ONE CAPSULE 4-5 TIMES DAILY))
     Route: 048
     Dates: start: 20160222
  2. ECOTRIN EC [Concomitant]
     Dosage: 81 MG, DAILY
     Route: 048
  3. LIPITOR [Concomitant]
     Active Substance: ATORVASTATIN CALCIUM
     Dosage: 10 MG, DAILY (10 MG BY MOUTH DAILY LATE.)
     Route: 048
  4. ROXICODONE [Concomitant]
     Active Substance: OXYCODONE HYDROCHLORIDE
     Dosage: 15 MG, 4X/DAY AS NEEDED
     Route: 048
     Dates: start: 20161127
  5. VOLTAREN [Concomitant]
     Active Substance: DICLOFENAC SODIUM
     Dosage: 1 %
  6. LOTRISONE [Concomitant]
     Active Substance: BETAMETHASONE DIPROPIONATE\CLOTRIMAZOLE
     Dosage: UNK, 2X/DAY[CLOTRIMAZOLE: 1; BETAMETHASONE DIPROPIONATE: 0.05%
  7. LOPID [Concomitant]
     Active Substance: GEMFIBROZIL
     Dosage: 600 MG, 2X/DAY
     Route: 048
  8. ROBAXIN [Concomitant]
     Active Substance: METHOCARBAMOL
     Indication: MUSCLE SPASMS
     Dosage: 750 MG, 3X/DAY (750 MG TID-QID)
     Route: 048
  9. ROBAXIN [Concomitant]
     Active Substance: METHOCARBAMOL
     Dosage: 750 MG, 4X/DAY (750 MG TID-QID)
     Route: 048
  10. ZOFRAN [Concomitant]
     Active Substance: ONDANSETRON HYDROCHLORIDE
     Indication: NAUSEA
     Dosage: 4 MG, 3X/DAY EVERY 8 HOURS AS NEEDED
     Route: 048
  11. IMITREX [Concomitant]
     Active Substance: SUMATRIPTAN SUCCINATE
     Dosage: 100 MG, UNK [MAY REPEAT IN 2 HRS;MAX DOSE 200MG IN 24 HRS]
     Route: 048
  12. CLONIDINE. [Concomitant]
     Active Substance: CLONIDINE
     Dosage: 30 UG/ML, UNK
     Route: 037
  13. BIOTIN [Concomitant]
     Active Substance: BIOTIN
     Dosage: UNK
  14. KLONOPIN [Concomitant]
     Active Substance: CLONAZEPAM
     Dosage: 1 MG, 2X/DAY
     Route: 048
  15. ROXICODONE [Concomitant]
     Active Substance: OXYCODONE HYDROCHLORIDE
     Dosage: 15 MG, AS NEEDED (UP TO 5 TIMES A DAY AS NEEDED)
     Route: 048
  16. MIRALAX [Concomitant]
     Active Substance: POLYETHYLENE GLYCOL 3350
     Dosage: 17 G, 1X/DAY AS NEEDED (DISSOLVE IN 8 OUNCES OF FLUID AND DRINK ENTIRE LIQUID)
     Route: 048
  17. VITAMIN B12 [Concomitant]
     Active Substance: CYANOCOBALAMIN
     Dosage: 1000 UG
     Route: 060
  18. ATARAX [Concomitant]
     Active Substance: HYDROXYZINE HYDROCHLORIDE
     Indication: PRURITUS
  19. COLACE [Concomitant]
     Active Substance: DOCUSATE SODIUM
     Dosage: UNK
  20. LYRICA [Suspect]
     Active Substance: PREGABALIN
     Indication: POLYNEUROPATHY
     Dosage: 200 MG, 2X/DAY
     Route: 048
  21. LYRICA [Suspect]
     Active Substance: PREGABALIN
     Dosage: 150 MG, 3X/DAY (TAKE 1 CAP EVERY 8 HOURS)
     Route: 048
     Dates: start: 20200114
  22. ROBAXIN [Concomitant]
     Active Substance: METHOCARBAMOL
     Dosage: 500 MG, 3X/DAY
  23. NYSTATIN. [Concomitant]
     Active Substance: NYSTATIN
     Dosage: UNK, DAILY [100,000 UNIT/GRAM POWDER]
  24. ZOFRAN [Concomitant]
     Active Substance: ONDANSETRON HYDROCHLORIDE
     Indication: VOMITING
  25. ZYRTEC [Concomitant]
     Active Substance: CETIRIZINE HYDROCHLORIDE
     Dosage: 10 MG, 1X/DAY (EARLY MORNING)
     Route: 048
  26. VITAMIN D3 [Concomitant]
     Active Substance: CHOLECALCIFEROL
     Dosage: 400 IU, DAILY
     Route: 048
  27. BUPIVACAINE. [Concomitant]
     Active Substance: BUPIVACAINE
     Dosage: 15 MG/ML, UNK
     Route: 037
  28. FLONASE [Concomitant]
     Active Substance: FLUTICASONE PROPIONATE
     Dosage: 4 DF, DAILY ([2 SPRAYS IN EACH NOSTRIL DAILY])
     Route: 045
  29. ZOLOFT [Concomitant]
     Active Substance: SERTRALINE HYDROCHLORIDE
     Dosage: 200 MG, 1X/DAY (EARLY MORNING)
     Route: 048
  30. DESYREL [Concomitant]
     Active Substance: TRAZODONE HYDROCHLORIDE
     Dosage: 300 MG, 1X/DAY (TAKE 300 MG BY MOUTH DAILY AT BEDTIME)
     Route: 048
  31. ASTELIN [Concomitant]
     Active Substance: AZELASTINE HYDROCHLORIDE
     Dosage: 4 DF, 2X/DAY (137 MCG/ACTUATION ADMINISTER 2 SPRAYS IN EACH NOSTRIL 2 TIMES DAILY)
     Route: 045
  32. IRON [Concomitant]
     Active Substance: IRON
     Dosage: 1 MG, DAILY
  33. VISTARIL [Concomitant]
     Active Substance: HYDROXYZINE PAMOATE
     Dosage: UNK
  34. ROBAXIN [Concomitant]
     Active Substance: METHOCARBAMOL
     Dosage: 750 MG, AS NEEDED
     Route: 048
  35. NYAMYC [Concomitant]
     Active Substance: NYSTATIN
     Dosage: UNK, DAILY100000 UNIT/GRAM POWDER DAILY
  36. HYDROMORPHONE [Concomitant]
     Active Substance: HYDROMORPHONE
     Dosage: 20 MG/ML, UNK
     Route: 037
  37. AMBIEN [Concomitant]
     Active Substance: ZOLPIDEM TARTRATE
     Dosage: 5 MG, 1X/DAY (AT BEDTIME)
  38. NEXLUM [Concomitant]
     Dosage: 20 MG, AS NEEDED (TAKE 20 MG BY MOUTH. PRN)
     Route: 048
  39. ROXICODONE [Concomitant]
     Active Substance: OXYCODONE HYDROCHLORIDE
     Dosage: 15 MG 1 TAB 5 TIMES DAILY FOR 30 DAYS
     Route: 048
     Dates: start: 20160303
  40. MS CONTIN [Concomitant]
     Active Substance: MORPHINE SULFATE
     Dosage: 30 MG, 2X/DAY (1 TAB EVERY 12 HOURS)
     Route: 048
     Dates: start: 20161127
  41. ATARAX [Concomitant]
     Active Substance: HYDROXYZINE HYDROCHLORIDE
     Indication: ANXIETY
     Dosage: 100 MG, 4X/DAY (EVERY 6 HOURS AS NEEDED)
     Route: 048
  42. TRIPLE ANTIBIOTIC PLUS [Concomitant]
     Active Substance: BACITRACIN ZINC\NEOMYCIN\POLYMYXIN B SULFATE\PRAMOXINE HYDROCHLORIDE
     Dosage: UNK (3.5-500-10,000 MG-UNIT-UNIT/G)
  43. VITAMIN B COMPLEX W VITAMIN C + FOLIC ACID [Concomitant]
     Dosage: 106 MG, DAILY
     Route: 048
  44. LYRICA [Suspect]
     Active Substance: PREGABALIN
     Indication: POST LAMINECTOMY SYNDROME
     Dosage: UNK
  45. ROXICODONE [Concomitant]
     Active Substance: OXYCODONE HYDROCHLORIDE
     Indication: PAIN
     Dosage: 15 MG, 4X/DAY AS NEEDED MODERATE FOR UP TO 30 DAYS
     Route: 048
     Dates: start: 20160126
  46. REQUIP [Concomitant]
     Active Substance: ROPINIROLE HYDROCHLORIDE
     Dosage: 4 MG, 1X/DAY AT BEDTIME
     Route: 048

REACTIONS (1)
  - Illness [Unknown]
